FAERS Safety Report 13775416 (Version 1)
Quarter: 2017Q3

REPORT INFORMATION
  Report Type: Report from Study
  Country: HU (occurrence: HU)
  Receive Date: 20170720
  Receipt Date: 20170720
  Transmission Date: 20171127
  Serious: Yes (Hospitalization)
  Sender: FDA-Public Use
  Company Number: PHHY2017HU020996

PATIENT
  Age: 61 Year
  Sex: Female
  Weight: 70 kg

DRUGS (9)
  1. BLINDED NO TREATMENT RECEIVED [Suspect]
     Active Substance: INVESTIGATIONAL PRODUCT
     Indication: RHEUMATOID ARTHRITIS
     Dosage: CODE NOT BROKEN
     Route: 058
     Dates: start: 20160511, end: 20161019
  2. FOLIC ACID. [Concomitant]
     Active Substance: FOLIC ACID
     Indication: RHEUMATOID ARTHRITIS
     Dosage: 6 MG
     Route: 065
     Dates: start: 20141017
  3. BLINDED ETANERCEPT [Suspect]
     Active Substance: ETANERCEPT
     Indication: RHEUMATOID ARTHRITIS
     Dosage: CODE NOT BROKEN
     Route: 058
     Dates: start: 20160511, end: 20161019
  4. BLINDED ETANERCEPT [Suspect]
     Active Substance: ETANERCEPT
     Dosage: CODE NOT BROKEN
     Route: 058
     Dates: start: 20161026, end: 20170202
  5. BLINDED NO TREATMENT RECEIVED [Suspect]
     Active Substance: INVESTIGATIONAL PRODUCT
     Dosage: CODE NOT BROKEN
     Route: 058
     Dates: start: 20161026, end: 20170202
  6. METHOTREXATE. [Concomitant]
     Active Substance: METHOTREXATE
     Indication: RHEUMATOID ARTHRITIS
     Dosage: 20 MG
     Route: 065
     Dates: start: 20140527
  7. BLINDED GP2015 [Suspect]
     Active Substance: INVESTIGATIONAL BIOSIMILARS
     Indication: RHEUMATOID ARTHRITIS
     Dosage: CODE NOT BROKEN
     Route: 058
     Dates: start: 20160511, end: 20161019
  8. BLINDED GP2015 [Suspect]
     Active Substance: INVESTIGATIONAL BIOSIMILARS
     Dosage: CODE NOT BROKEN
     Route: 058
     Dates: start: 20161026, end: 20170202
  9. NORIFAZ TRIO [Concomitant]
     Indication: OSTEOPOROSIS
     Dosage: 35 MG
     Route: 065
     Dates: start: 20140527

REACTIONS (1)
  - Pneumonia [Recovered/Resolved]

NARRATIVE: CASE EVENT DATE: 20170202
